FAERS Safety Report 9399196 (Version 1)
Quarter: 2013Q3

REPORT INFORMATION
  Report Type: Spontaneous
  Country: CN (occurrence: None)
  Receive Date: 20130709
  Receipt Date: 20130709
  Transmission Date: 20140515
  Serious: Yes (Other)
  Sender: FDA-Public Use
  Company Number: 2013P1011314

PATIENT
  Age: 10 Year
  Sex: Male

DRUGS (1)
  1. ALBENDAZOLE [Suspect]
     Indication: HELMINTHIC INFECTION
     Dosage: 2 TABLETS?
     Route: 048
     Dates: start: 20121007, end: 20121007

REACTIONS (2)
  - Anaphylactoid reaction [None]
  - Dry mouth [None]
